FAERS Safety Report 6787937-3 (Version None)
Quarter: 2010Q2

REPORT INFORMATION
  Report Type: 
  Country: None (occurrence: None)
  Receive Date: 20100623
  Receipt Date: 20071102
  Transmission Date: 20101027
  Serious: No
  Sender: FDA-Public Use
  Company Number: US-PFIZER INC-2007094234

PATIENT
  Age: 20 Year
  Sex: Female

DRUGS (1)
  1. DEPO-PROVERA SUSPENSION/INJ [Suspect]
     Dates: start: 20030101, end: 20050101

REACTIONS (4)
  - BACK PAIN [None]
  - HEADACHE [None]
  - MOOD SWINGS [None]
  - PROGESTERONE DECREASED [None]
